FAERS Safety Report 4548539-2 (Version None)
Quarter: 2004Q4

REPORT INFORMATION
  Report Type: 
  Country: None (occurrence: None)
  Receive Date: 20041227
  Receipt Date: 20041116
  Transmission Date: 20050328
  Serious: Yes (Hospitalization)
  Sender: FDA-Public Use
  Company Number: 04P-163-0280778-00

PATIENT
  Age: 70 Year
  Sex: Female
  Weight: 90.7194 kg

DRUGS (6)
  1. HUMIRA [Suspect]
     Indication: RHEUMATOID ARTHRITIS
     Dosage: 40 MG, 1 IN 2 WK, SUBCUTANEOUS
     Route: 058
     Dates: start: 20040701, end: 20041019
  2. PARACEMTAMOL [Concomitant]
  3. PROPACT [Concomitant]
  4. GLIMEPIRIDE [Concomitant]
  5. METHOTREXATE [Concomitant]
  6. PREDNISONE [Concomitant]

REACTIONS (2)
  - GASTROENTERITIS [None]
  - PNEUMONIA [None]
